FAERS Safety Report 7888739-7 (Version None)
Quarter: 2011Q4

REPORT INFORMATION
  Report Type: 
  Country: None (occurrence: None)
  Receive Date: 20111103
  Receipt Date: 20111004
  Transmission Date: 20120403
  Serious: Yes (Hospitalization)
  Sender: FDA-Public Use
  Company Number: US-ROCHE-792046

PATIENT
  Sex: Female
  Weight: 42.6 kg

DRUGS (6)
  1. PACLITAXEL [Suspect]
     Indication: OVARIAN EPITHELIAL CANCER
     Dosage: IV OVER 3 HRS ON DAY 1.LAST ADMINISTERED DATE:192MG
     Route: 033
  2. AVASTIN [Suspect]
     Dosage: 15 MG/KG IV OVER 30-90 MIN ON DAY 1, PHASE:B (CYCLE 7-22), 08 JUNE 2011 WAS LAST DOSE ADMINISTERED
     Route: 042
  3. SYNTHROID [Concomitant]
  4. CISPLATIN [Suspect]
     Indication: OVARIAN EPITHELIAL CANCER
     Dosage: LAST DOSE ADMINISTERED ON 06 JUNE 2011, ON DAY 2.TOTAL DOSE ADMINISTERED 107MG
     Route: 033
  5. PACLITAXEL [Suspect]
     Dosage: LAST DOSE ADMINISTERED WAS 08 JUN 2011. DRUG WITHDRAWN,ON DAY 8.PHASE A (CYCLES 1-6):
     Route: 033
  6. AVASTIN [Suspect]
     Indication: OVARIAN EPITHELIAL CANCER
     Dosage: CYCLE = 3 WEEKS:30-90 MIN ON DAY 1, BEGINNING WITH CYCLE 2.PHASE:A (CYCLE1-6), TOTAL DOSE:700MG
     Route: 042

REACTIONS (4)
  - ASCITES [None]
  - CONSTIPATION [None]
  - INFECTIOUS PERITONITIS [None]
  - ABDOMINAL PAIN [None]
